FAERS Safety Report 5632095-1 (Version None)
Quarter: 2008Q1

REPORT INFORMATION
  Report Type: 
  Country: None (occurrence: None)
  Receive Date: 20080220
  Receipt Date: 20080212
  Transmission Date: 20080703
  Serious: Yes (Life-Threatening, Hospitalization)
  Sender: FDA-Public Use
  Company Number: B0507730A

PATIENT
  Age: 84 Year
  Sex: Female

DRUGS (15)
  1. ZYLORIC [Suspect]
     Dosage: 200MG PER DAY
     Route: 048
     Dates: end: 20080117
  2. SERETIDE DISKUS [Suspect]
     Route: 055
     Dates: end: 20080117
  3. ALDACTONE [Suspect]
     Dosage: 12.5MG PER DAY
     Route: 048
     Dates: start: 20071214, end: 20080117
  4. RAMIPRIL [Suspect]
     Dosage: 1.25MG PER DAY
     Dates: end: 20080117
  5. LASILIX [Suspect]
     Route: 048
     Dates: end: 20080101
  6. ACEBUTOLOL [Suspect]
     Dosage: 200MG PER DAY
     Route: 048
     Dates: end: 20080117
  7. AMLOR [Suspect]
     Dosage: 5MG TWICE PER DAY
     Dates: end: 20080117
  8. PLAVIX [Suspect]
     Dosage: 75MG PER DAY
     Route: 048
     Dates: end: 20080117
  9. KARDEGIC [Suspect]
     Dosage: 160MG PER DAY
     Route: 048
     Dates: end: 20080117
  10. ELISOR [Suspect]
     Dosage: 20MG PER DAY
     Route: 048
     Dates: end: 20080117
  11. CORVASAL [Suspect]
     Dosage: 1TAB THREE TIMES PER DAY
     Route: 048
     Dates: start: 20071214, end: 20080117
  12. FORLAX [Suspect]
     Route: 048
     Dates: end: 20080117
  13. OSTRAM VITAMINE D3 [Suspect]
     Route: 048
     Dates: end: 20080117
  14. FOSAMAX [Suspect]
     Dosage: 70MG PER DAY
     Route: 048
     Dates: end: 20080117
  15. HUMALOG [Concomitant]
     Route: 058

REACTIONS (13)
  - ACIDOSIS [None]
  - ASTHENIA [None]
  - BRADYCARDIA [None]
  - COMA [None]
  - DEHYDRATION [None]
  - HYPERKALAEMIA [None]
  - HYPERLACTACIDAEMIA [None]
  - LYMPHOEDEMA [None]
  - MALAISE [None]
  - OEDEMA PERIPHERAL [None]
  - RENAL FAILURE ACUTE [None]
  - SOMNOLENCE [None]
  - URINE OUTPUT DECREASED [None]
